FAERS Safety Report 12829335 (Version 1)
Quarter: 2016Q4

REPORT INFORMATION
  Report Type: Spontaneous
  Country: US (occurrence: US)
  Receive Date: 20161007
  Receipt Date: 20161007
  Transmission Date: 20170207
  Serious: No
  Sender: FDA-Public Use
  Company Number: US-GLAXOSMITHKLINE-US2016GSK147565

PATIENT

DRUGS (4)
  1. WELLBUTRIN XL [Suspect]
     Active Substance: BUPROPION HYDROCHLORIDE
     Indication: DEPRESSION
     Dosage: 300 MG, UNK
  2. BUPROPION TABLET [Suspect]
     Active Substance: BUPROPION
     Indication: DEPRESSION
  3. WELLBUTRIN [Suspect]
     Active Substance: BUPROPION HYDROCHLORIDE
     Indication: DEPRESSION
     Dosage: 75 MG, QID
  4. WELLBUTRIN [Suspect]
     Active Substance: BUPROPION HYDROCHLORIDE
     Indication: DEPRESSION
     Dosage: 100 MG, TID
     Dates: start: 2015

REACTIONS (7)
  - Therapeutic response unexpected [Unknown]
  - Depression [Unknown]
  - Drug effect incomplete [Unknown]
  - Emotional distress [Unknown]
  - Drug ineffective [Unknown]
  - Condition aggravated [Unknown]
  - Fatigue [Unknown]
